FAERS Safety Report 25073932 (Version 2)
Quarter: 2025Q1

REPORT INFORMATION
  Report Type: Spontaneous
  Country: IR (occurrence: IR)
  Receive Date: 20250313
  Receipt Date: 20250318
  Transmission Date: 20250409
  Serious: Yes (Other)
  Sender: BAUSCH AND LOMB
  Company Number: IR-BAUSCH-BL-2025-003202

PATIENT
  Age: 16 Year
  Sex: Male
  Weight: 120 kg

DRUGS (8)
  1. DEXAMETHASONE [Suspect]
     Active Substance: DEXAMETHASONE
     Indication: Product used for unknown indication
     Route: 065
  2. DEXAMETHASONE [Suspect]
     Active Substance: DEXAMETHASONE
     Dosage: LOW-DOSE
     Route: 065
  3. CARBAMAZEPINE [Suspect]
     Active Substance: CARBAMAZEPINE
     Indication: Psychiatric care
     Route: 065
     Dates: start: 202310, end: 202409
  4. LITHIUM [Concomitant]
     Active Substance: LITHIUM
     Indication: Psychiatric care
     Route: 065
     Dates: start: 202310
  5. HALOPERIDOL [Concomitant]
     Active Substance: HALOPERIDOL
     Indication: Psychiatric care
     Route: 065
     Dates: start: 202310
  6. TOPIRAMATE [Concomitant]
     Active Substance: TOPIRAMATE
     Indication: Psychiatric care
     Dosage: 200 MG DAILY IN TWO DOSES
     Route: 065
     Dates: start: 202310
  7. VALPROATE SODIUM [Concomitant]
     Active Substance: VALPROATE SODIUM
     Indication: Psychiatric care
     Dosage: 300 MG IN THREE DOSES
     Route: 065
     Dates: start: 202310, end: 202409
  8. BIPERIDEN [Concomitant]
     Active Substance: BIPERIDEN
     Indication: Psychiatric care
     Route: 065
     Dates: start: 202310

REACTIONS (2)
  - Hyperadrenocorticism [Recovered/Resolved]
  - Drug interaction [Recovered/Resolved]
